FAERS Safety Report 7047547-X (Version None)
Quarter: 2010Q4

REPORT INFORMATION
  Report Type: 
  Country: None (occurrence: None)
  Receive Date: 20101015
  Receipt Date: 20101005
  Transmission Date: 20110411
  Serious: Yes (Other)
  Sender: FDA-Public Use
  Company Number: NL-PFIZER INC-2010126448

PATIENT
  Age: 93 Year
  Sex: Female

DRUGS (4)
  1. LYRICA [Suspect]
     Indication: NEURALGIA
     Dosage: 75 MG, ALTERNATE DAY
     Dates: end: 20100927
  2. MONO-CEDOCARD [Concomitant]
  3. PANTOPRAZOLE SODIUM [Concomitant]
     Dosage: UNK
  4. TEMAZEPAM [Concomitant]
     Indication: NERVOUSNESS

REACTIONS (4)
  - DRUG WITHDRAWAL SYNDROME [None]
  - DYSPNOEA [None]
  - HEADACHE [None]
  - VISUAL IMPAIRMENT [None]
